FAERS Safety Report 9785895 (Version 2)
Quarter: 2014Q1

REPORT INFORMATION
  Report Type: Spontaneous
  Country: US (occurrence: US)
  Receive Date: 20131227
  Receipt Date: 20140108
  Transmission Date: 20141002
  Serious: No
  Sender: FDA-Public Use
  Company Number: US-PFIZER INC-2013368564

PATIENT
  Age: 84 Year
  Sex: Female

DRUGS (1)
  1. ACCUPRIL [Suspect]
     Dosage: UNK

REACTIONS (1)
  - Hypoacusis [Unknown]
